FAERS Safety Report 11245561 (Version 1)
Quarter: 2015Q3

REPORT INFORMATION
  Report Type: Spontaneous
  Country: TW (occurrence: TW)
  Receive Date: 20150707
  Receipt Date: 20150707
  Transmission Date: 20151125
  Serious: Yes (Hospitalization)
  Sender: FDA-Public Use
  Company Number: TW-SA-2015SA097109

PATIENT
  Age: 33 Year
  Sex: Female

DRUGS (1)
  1. MYOZYME [Suspect]
     Active Substance: ALGLUCOSIDASE ALFA
     Indication: GLYCOGEN STORAGE DISEASE TYPE II
     Route: 041
     Dates: start: 2006

REACTIONS (1)
  - Mood swings [Unknown]

NARRATIVE: CASE EVENT DATE: 20150626
